FAERS Safety Report 7271524-7 (Version None)
Quarter: 2011Q1

REPORT INFORMATION
  Report Type: 
  Country: None (occurrence: None)
  Receive Date: 20110128
  Receipt Date: 20110128
  Transmission Date: 20110831
  Serious: Yes (Other)
  Sender: FDA-Public Use
  Company Number: None

PATIENT
  Age: 69 Year
  Sex: Female

DRUGS (1)
  1. WARFARIN SODIUM [Suspect]
     Dosage: BY MOUTH AS DIRECTED (USUALLY ONE TABLET DAILY)
     Dates: start: 20101001

REACTIONS (2)
  - INTERNATIONAL NORMALISED RATIO DECREASED [None]
  - PRODUCT QUALITY ISSUE [None]
